FAERS Safety Report 5127037-1 (Version None)
Quarter: 2006Q4

REPORT INFORMATION
  Report Type: 
  Country: None (occurrence: None)
  Receive Date: 20061013
  Receipt Date: 20061006
  Transmission Date: 20070319
  Serious: Yes (Life-Threatening, Other)
  Sender: FDA-Public Use
  Company Number: 2006JP003590

PATIENT
  Age: 37 Year
  Sex: Female

DRUGS (4)
  1. CEFAMEZIN [Suspect]
     Indication: BETA HAEMOLYTIC STREPTOCOCCAL INFECTION
     Dosage: 2G SINGLE DOSE
     Route: 042
  2. PREDNISOLONE [Concomitant]
     Route: 065
  3. THEOPHYLLINE [Concomitant]
     Route: 065
  4. OXYTOCIN [Concomitant]
     Indication: INDUCED LABOUR

REACTIONS (11)
  - ANAPHYLACTIC REACTION [None]
  - BURNING SENSATION [None]
  - CHEST DISCOMFORT [None]
  - DIZZINESS [None]
  - DYSPNOEA [None]
  - HYPOTENSION [None]
  - NAUSEA [None]
  - PRURITUS [None]
  - TACHYCARDIA [None]
  - URTICARIA [None]
  - WHEEZING [None]
